FAERS Safety Report 10081881 (Version 1)
Quarter: 2014Q2

REPORT INFORMATION
  Report Type: Report from Study
  Country: US (occurrence: US)
  Receive Date: 20140416
  Receipt Date: 20140416
  Transmission Date: 20141212
  Serious: Yes (Other)
  Sender: FDA-Public Use
  Company Number: US-ALEXION PHARMACEUTICALS INC.-A200901261

PATIENT
  Sex: 0

DRUGS (1)
  1. SOLIRIS [Suspect]
     Indication: PAROXYSMAL NOCTURNAL HAEMOGLOBINURIA
     Dosage: UNK
     Route: 042

REACTIONS (6)
  - Pericarditis [Recovering/Resolving]
  - Sepsis [Recovering/Resolving]
  - Abdominal pain [Not Recovered/Not Resolved]
  - Energy increased [Unknown]
  - Haemoglobinuria [Unknown]
  - Dehydration [Unknown]
